FAERS Safety Report 25380373 (Version 1)
Quarter: 2025Q2

REPORT INFORMATION
  Report Type: Spontaneous
  Country: US (occurrence: US)
  Receive Date: 20250530
  Receipt Date: 20250530
  Transmission Date: 20250717
  Serious: No
  Sender: SANOFI AVENTIS
  Company Number: US-SA-2025SA153314

PATIENT
  Sex: Female

DRUGS (7)
  1. DUPIXENT [Suspect]
     Active Substance: DUPILUMAB
     Indication: Asthma
     Dosage: 300 MG, QOW
     Route: 058
     Dates: start: 20221221
  2. BREO ELLIPTA [Concomitant]
     Active Substance: FLUTICASONE FUROATE\VILANTEROL TRIFENATATE
  3. DILTIAZEM [Concomitant]
     Active Substance: DILTIAZEM
  4. FLUTICASONE [Concomitant]
     Active Substance: FLUTICASONE
  5. OMEPRAZOLE [Concomitant]
     Active Substance: OMEPRAZOLE
  6. PREDNISONE [Concomitant]
     Active Substance: PREDNISONE
  7. SERTRALINE [Concomitant]
     Active Substance: SERTRALINE HYDROCHLORIDE

REACTIONS (3)
  - Impaired quality of life [Unknown]
  - Drug ineffective [Unknown]
  - Intentional dose omission [Unknown]
